FAERS Safety Report 25883573 (Version 2)
Quarter: 2025Q4

REPORT INFORMATION
  Report Type: Spontaneous
  Country: US (occurrence: US)
  Receive Date: 20251006
  Receipt Date: 20251130
  Transmission Date: 20260117
  Serious: No
  Sender: STALLERGENES
  Company Number: US-STALCOR-2025-AER-02460

PATIENT
  Age: 7 Year
  Sex: Female

DRUGS (3)
  1. PALFORZIA [Suspect]
     Active Substance: PEANUT
     Indication: Food allergy
     Dosage: MIX CONTENTS OF 1 SACHET WELL WITH SEMISOLID FOOD AS DIRECETD AND CONSUME ONCE DAILY AT APPROXIMATEL
     Route: 048
  2. PALFORZIA [Suspect]
     Active Substance: PEANUT
     Dosage: IDE
     Route: 048
  3. PALFORZIA [Suspect]
     Active Substance: PEANUT
     Dosage: DISPENSED ON 14-AUG-2025, LEVEL 11 AT 300MG MAINTAINENCE
     Route: 048

REACTIONS (6)
  - Pyrexia [Not Recovered/Not Resolved]
  - Ear pain [Not Recovered/Not Resolved]
  - SARS-CoV-2 test positive [Not Recovered/Not Resolved]
  - Illness [Unknown]
  - Vomiting [Not Recovered/Not Resolved]
  - Product dose omission issue [Unknown]

NARRATIVE: CASE EVENT DATE: 20251002
